FAERS Safety Report 17978858 (Version 1)
Quarter: 2020Q3

REPORT INFORMATION
  Report Type: Report from Study
  Country: US (occurrence: US)
  Receive Date: 20200703
  Receipt Date: 20200703
  Transmission Date: 20201103
  Serious: Yes (Death, Hospitalization)
  Sender: FDA-Public Use
  Company Number: US-ASTRAZENECA-2020SE83330

PATIENT
  Sex: Male
  Weight: 89.4 kg

DRUGS (1)
  1. LYNPARZA [Suspect]
     Active Substance: OLAPARIB
     Indication: LUNG CARCINOMA CELL TYPE UNSPECIFIED STAGE IV
     Route: 048
     Dates: start: 202003

REACTIONS (4)
  - Malignant gastrointestinal obstruction [Not Recovered/Not Resolved]
  - Weight increased [Not Recovered/Not Resolved]
  - Fluid retention [Unknown]
  - Death [Fatal]
